FAERS Safety Report 5063633-8 (Version None)
Quarter: 2006Q3

REPORT INFORMATION
  Report Type: 
  Country: None (occurrence: None)
  Receive Date: 20060724
  Receipt Date: 20060711
  Transmission Date: 20061208
  Serious: No
  Sender: FDA-Public Use
  Company Number: 2006-145231-NL

PATIENT
  Age: 24 Year
  Sex: Female

DRUGS (1)
  1. ETONOGESTREL [Suspect]
     Indication: CONTRACEPTION
     Dosage: DF

REACTIONS (3)
  - IATROGENIC INJURY [None]
  - IMPLANT SITE NERVE INJURY [None]
  - NERVE COMPRESSION [None]
